FAERS Safety Report 5737971-7 (Version None)
Quarter: 2008Q2

REPORT INFORMATION
  Report Type: 
  Country: None (occurrence: None)
  Receive Date: 20080512
  Receipt Date: 20080512
  Transmission Date: 20081010
  Serious: Yes (Hospitalization)
  Sender: FDA-Public Use
  Company Number: None

PATIENT
  Sex: Male
  Weight: 80 kg

DRUGS (3)
  1. FLUOROURACIL [Suspect]
     Dosage: 5510 MG
  2. CISPLATIN [Suspect]
     Dosage: 95 MG
  3. ELLENCE [Suspect]
     Dosage: 60 MG

REACTIONS (14)
  - ABDOMINAL PAIN [None]
  - ACUTE MYOCARDIAL INFARCTION [None]
  - BRONCHOPULMONARY ASPERGILLOSIS [None]
  - EJECTION FRACTION DECREASED [None]
  - GASTROINTESTINAL INFLAMMATION [None]
  - HYPOTONIA [None]
  - INTESTINAL ISCHAEMIA [None]
  - LOSS OF CONSCIOUSNESS [None]
  - PLEURAL EFFUSION [None]
  - QUADRIPLEGIA [None]
  - RESPIRATORY DISTRESS [None]
  - SEPSIS [None]
  - TACHYCARDIA [None]
  - WHITE BLOOD CELL COUNT DECREASED [None]
